FAERS Safety Report 8058341-5 (Version None)
Quarter: 2012Q1

REPORT INFORMATION
  Report Type: 
  Country: None (occurrence: None)
  Receive Date: 20120120
  Receipt Date: 20120109
  Transmission Date: 20120608
  Serious: Yes (Other)
  Sender: FDA-Public Use
  Company Number: CA-JNJFOC-20120106795

PATIENT
  Sex: Male
  Weight: 79.6 kg

DRUGS (3)
  1. REMICADE [Suspect]
     Indication: CROHN'S DISEASE
     Route: 042
     Dates: start: 20110913
  2. HYDROCORTISONE [Concomitant]
     Indication: PREMEDICATION
     Route: 065
  3. BENADRYL [Concomitant]
     Indication: PREMEDICATION
     Route: 065

REACTIONS (7)
  - VOMITING [None]
  - ANXIETY [None]
  - HEADACHE [None]
  - ASTHENIA [None]
  - NAUSEA [None]
  - INFUSION RELATED REACTION [None]
  - PALPITATIONS [None]
